FAERS Safety Report 11865999 (Version 1)
Quarter: 2015Q4

REPORT INFORMATION
  Report Type: Spontaneous
  Country: US (occurrence: US)
  Receive Date: 20151223
  Receipt Date: 20151223
  Transmission Date: 20160305
  Serious: Yes (Hospitalization)
  Sender: FDA-Public Use
  Company Number: US-ABBVIE-15P-163-1523296-00

PATIENT
  Age: 59 Year
  Sex: Male
  Weight: 88.53 kg

DRUGS (3)
  1. ANDROGEL [Suspect]
     Active Substance: TESTOSTERONE
     Indication: BLOOD TESTOSTERONE DECREASED
     Dosage: 2 PUMPS
     Route: 061
     Dates: end: 20151211
  2. AMBIEN [Concomitant]
     Active Substance: ZOLPIDEM TARTRATE
     Indication: PRODUCT USED FOR UNKNOWN INDICATION
     Route: 048
  3. OMEPRAZOLE. [Concomitant]
     Active Substance: OMEPRAZOLE
     Indication: GASTROOESOPHAGEAL REFLUX DISEASE
     Route: 048

REACTIONS (3)
  - Chest pain [Recovering/Resolving]
  - Pulmonary embolism [Not Recovered/Not Resolved]
  - Dyspnoea [Recovering/Resolving]

NARRATIVE: CASE EVENT DATE: 201512
